FAERS Safety Report 8361998-2 (Version None)
Quarter: 2012Q2

REPORT INFORMATION
  Report Type: 
  Country: None (occurrence: None)
  Receive Date: 20120515
  Receipt Date: 20120508
  Transmission Date: 20120825
  Serious: No
  Sender: FDA-Public Use
  Company Number: US-ASTRAZENECA-2012SE29856

PATIENT
  Age: 42 Year
  Sex: Male
  Weight: 81.6 kg

DRUGS (5)
  1. XANAX [Concomitant]
  2. PROZAC [Concomitant]
  3. TIZANIDINE [Concomitant]
  4. SEROQUEL XR [Suspect]
     Indication: BIPOLAR DISORDER
     Route: 048
     Dates: start: 20080101
  5. LORTAB [Concomitant]

REACTIONS (3)
  - INTENTIONAL DRUG MISUSE [None]
  - ARTHRITIS [None]
  - SOMNOLENCE [None]
